FAERS Safety Report 8188352-0 (Version None)
Quarter: 2012Q1

REPORT INFORMATION
  Report Type: 
  Country: None (occurrence: None)
  Receive Date: 20120221
  Receipt Date: 20110106
  Transmission Date: 20120608
  Serious: Yes (Hospitalization)
  Sender: FDA-Public Use
  Company Number: PHHY2011US01734

PATIENT
  Age: 58 Year
  Sex: Male

DRUGS (1)
  1. TOBI [Suspect]
     Dosage: 300 MG, BID
     Dates: start: 20101201, end: 20101230

REACTIONS (3)
  - URINE FLOW DECREASED [None]
  - DYSPNOEA [None]
  - DYSPHONIA [None]
